FAERS Safety Report 4618015-7 (Version None)
Quarter: 2005Q1

REPORT INFORMATION
  Report Type: 
  Country: None (occurrence: None)
  Receive Date: 20050314
  Receipt Date: 20050302
  Transmission Date: 20050727
  Serious: Yes (Hospitalization)
  Sender: FDA-Public Use
  Company Number: E2005-00258

PATIENT
  Age: 10 Month
  Sex: Male

DRUGS (1)
  1. TUBERSOL [Suspect]
     Indication: TUBERCULIN TEST
     Dosage: 0.1 ML I.D.
     Dates: start: 20040929

REACTIONS (16)
  - BRONCHITIS [None]
  - CULTURE POSITIVE [None]
  - ECCHYMOSIS [None]
  - GASTROENTERITIS [None]
  - HAEMOGLOBIN DECREASED [None]
  - INJECTION SITE ABSCESS [None]
  - INJECTION SITE RASH [None]
  - LABORATORY TEST INTERFERENCE [None]
  - LYMPHADENOPATHY [None]
  - NASOPHARYNGITIS [None]
  - PLATELET COUNT INCREASED [None]
  - RASH PAPULAR [None]
  - REGURGITATION OF FOOD [None]
  - SCAR [None]
  - STAPHYLOCOCCAL INFECTION [None]
  - TUBERCULOSIS [None]
